FAERS Safety Report 9705914 (Version 2)
Quarter: 2013Q4

REPORT INFORMATION
  Report Type: Spontaneous
  Country: US (occurrence: US)
  Receive Date: 20131122
  Receipt Date: 20131122
  Transmission Date: 20140711
  Serious: No
  Sender: FDA-Public Use
  Company Number: US-GALDERMA-US-GDP-12415355

PATIENT
  Age: 64 Year
  Sex: Female

DRUGS (17)
  1. CLOBEX (CLOBETASOL PROPIONATE) SPRAY, 0.05% [Suspect]
     Indication: ALOPECIA
     Route: 061
     Dates: start: 20121011, end: 20121026
  2. CLOBEX (CLOBETASOL PROPIONATE) SPRAY, 0.05% [Suspect]
     Indication: ALOPECIA
     Route: 061
     Dates: start: 20121014, end: 20121015
  3. SINGULAIR [Concomitant]
  4. PRISTIQ [Concomitant]
  5. VERAPAMIL [Concomitant]
  6. ESTRADIOL [Concomitant]
  7. PROGESTERONE [Concomitant]
  8. HYDROCHLOROTHIAZIDE [Concomitant]
  9. VALTREX [Concomitant]
  10. ENTOCOURT [Concomitant]
  11. DEXILANT [Concomitant]
  12. NASONEX [Concomitant]
     Route: 045
  13. PROVENTIL [Concomitant]
     Indication: ASTHMA
  14. IMITREX [Concomitant]
     Indication: MIGRAINE
  15. VITAMINS [Concomitant]
  16. SUPPLEMENTS [Concomitant]
  17. SHAMPOOS [Concomitant]
     Indication: THERAPEUTIC SKIN CARE TOPICAL

REACTIONS (3)
  - Hair disorder [Recovered/Resolved]
  - Alopecia [Recovered/Resolved]
  - Off label use [Recovered/Resolved]
